FAERS Safety Report 19717991 (Version 1)
Quarter: 2021Q3

REPORT INFORMATION
  Report Type: Report from Study
  Country: FR (occurrence: FR)
  Receive Date: 20210818
  Receipt Date: 20210818
  Transmission Date: 20211014
  Serious: Yes (Hospitalization)
  Sender: FDA-Public Use
  Company Number: FR-PFIZER INC-202101034217

PATIENT
  Age: 69 Year
  Sex: Female
  Weight: 73 kg

DRUGS (25)
  1. INSULIN RAPID [Concomitant]
     Active Substance: INSULIN NOS
     Dosage: UNK, AS NEEDED
  2. MIANSERINE ARROW [Concomitant]
     Active Substance: MIANSERIN HYDROCHLORIDE
     Dosage: 2 DF, 1X/DAY IN THE EVENING
     Route: 048
  3. VINCRISTINE SULFATE. [Suspect]
     Active Substance: VINCRISTINE SULFATE
     Indication: ACUTE LYMPHOCYTIC LEUKAEMIA
     Dosage: 2 MG DAY 1
     Dates: start: 20210705, end: 20210705
  4. CYTARABINE. [Suspect]
     Active Substance: CYTARABINE
     Indication: ACUTE LYMPHOCYTIC LEUKAEMIA
     Dosage: 40 MG DAY 2
     Dates: start: 20210706, end: 20210706
  5. SPIRIVA [Concomitant]
     Active Substance: TIOTROPIUM BROMIDE MONOHYDRATE
     Dosage: 1 DF, DAILY IN THE MORNING
     Route: 055
  6. PHOSPHONEUROS [Concomitant]
     Active Substance: CALCIUM PHOSPHATE, DIBASIC, ANHYDROUS\MAGNESIUM GLYCEROPHOSPHATE\PHOSPHORIC ACID\SODIUM PHOSPHATE, DIBASIC
     Dosage: 15 DROP, 2X/DAY IN THE MORNING AND IN THE EVENING
     Route: 048
  7. DIFFU?K [Concomitant]
     Active Substance: POTASSIUM CHLORIDE
     Dosage: 1 DF, 3X/DAY IN THE MORNING, AT NOON AND IN THE EVENING
     Route: 048
  8. VALACICLOVIR [Concomitant]
     Active Substance: VALACYCLOVIR HYDROCHLORIDE
     Dosage: 1 DF, 2X/DAY IN THE MORNING AND IN THE EVENING
     Route: 048
  9. INOTUZUMAB OZOGAMICIN [Suspect]
     Active Substance: INOTUZUMAB OZOGAMICIN
     Indication: ACUTE LYMPHOCYTIC LEUKAEMIA
     Dosage: 1.4 MG DAY 1
     Dates: start: 20210705, end: 20210705
  10. ATORVASTATIN ARROW [Concomitant]
     Active Substance: ATORVASTATIN CALCIUM
     Dosage: 1 DF, 1X/DAY IN THE EVENING
     Route: 048
  11. TRANSIPEG [MACROGOL 3350;POTASSIUM CHLORIDE;SODIUM BICARBONATE;SODIUM [Concomitant]
     Dosage: 2 SACHET, 1X/DAY IN THE MORNING
     Route: 048
  12. VINCRISTINE SULFATE. [Suspect]
     Active Substance: VINCRISTINE SULFATE
     Dosage: 2 MG DAY 8
     Dates: start: 20210712, end: 20210712
  13. VINCRISTINE SULFATE. [Suspect]
     Active Substance: VINCRISTINE SULFATE
     Dosage: 2 MG DAY 22
     Dates: start: 20210726, end: 20210726
  14. METHOTREXATE. [Suspect]
     Active Substance: METHOTREXATE
     Indication: ACUTE LYMPHOCYTIC LEUKAEMIA
     Dosage: 15 MG DAY 2
     Route: 037
     Dates: start: 20210706, end: 20210706
  15. PANTOPRAZOLE SODIUM. [Concomitant]
     Active Substance: PANTOPRAZOLE SODIUM
     Dosage: 1 DF, DAILY IN THE EVENING
     Route: 048
  16. MAG 2 [MAGNESIUM CARBONATE] [Concomitant]
     Active Substance: MAGNESIUM CARBONATE
     Dosage: 2 SACHET, 3X/DAY
     Route: 048
  17. CANDESARTAN ARROW [Concomitant]
     Active Substance: CANDESARTAN CILEXETIL
     Dosage: 2 DF, 1X/DAY IN THE MORNING
     Route: 048
  18. NOVOMIX [Concomitant]
     Active Substance: INSULIN ASPART
     Dosage: ON MONDAY, TUESDAY, WEDNESDAY AND THURSDAY 16 IU AT 7 AM AND 18 IU AT 12 AM
     Route: 058
  19. ZYMAD [Concomitant]
     Active Substance: CHOLECALCIFEROL
     Dosage: 50000 IU EVERY 7 DAYS IN THE MORNING FOR 6 WEEKS THEN EVERY MONTH FOR 6 MONTHS
     Route: 048
  20. METFORMIN ARROW [Concomitant]
     Active Substance: METFORMIN HYDROCHLORIDE
     Dosage: 1 DF, 1X/DAY IN THE EVENING
     Route: 048
  21. VINCRISTINE SULFATE. [Suspect]
     Active Substance: VINCRISTINE SULFATE
     Dosage: 2 MG DAY 15
     Dates: start: 20210719, end: 20210719
  22. INOTUZUMAB OZOGAMICIN [Suspect]
     Active Substance: INOTUZUMAB OZOGAMICIN
     Dosage: 0.85 MG DAY 8
     Dates: start: 20210712, end: 20210712
  23. ESIDREX [Concomitant]
     Active Substance: HYDROCHLOROTHIAZIDE
     Dosage: 1 DF, 1X/DAY IN THE MORNING
     Route: 048
  24. KARDEGIC [Concomitant]
     Active Substance: ASPIRIN DL-LYSINE
     Dosage: 1 SACHET, 1X/DAY AT NOON
  25. INOTUZUMAB OZOGAMICIN [Suspect]
     Active Substance: INOTUZUMAB OZOGAMICIN
     Dosage: 0.85 MG DAY 15
     Dates: start: 20210719, end: 20210719

REACTIONS (1)
  - Febrile neutropenia [Recovering/Resolving]

NARRATIVE: CASE EVENT DATE: 20210730
